FAERS Safety Report 25475255 (Version 10)
Quarter: 2025Q4

REPORT INFORMATION
  Report Type: Spontaneous
  Country: US (occurrence: US)
  Receive Date: 20250624
  Receipt Date: 20251106
  Transmission Date: 20260118
  Serious: No
  Sender: PFIZER
  Company Number: US-PFIZER INC-202500121467

PATIENT
  Age: 3 Year
  Sex: Female
  Weight: 9.07 kg

DRUGS (1)
  1. GENOTROPIN [Suspect]
     Active Substance: SOMATROPIN
     Indication: Growth disorder
     Dosage: 0.4 MG, DAILY
     Route: 058

REACTIONS (3)
  - Device material issue [Unknown]
  - Device use error [Unknown]
  - Device use issue [Unknown]
